FAERS Safety Report 6540614-6 (Version None)
Quarter: 2010Q1

REPORT INFORMATION
  Report Type: 
  Country: None (occurrence: None)
  Receive Date: 20100112
  Receipt Date: 20091027
  Transmission Date: 20100710
  Serious: No
  Sender: FDA-Public Use
  Company Number: 2009-00693

PATIENT
  Age: 26 Year
  Sex: Female
  Weight: 61.2356 kg

DRUGS (1)
  1. COLD REMEDY ORAL MIST [Suspect]
     Dosage: QD - ONE DOSE
     Dates: start: 20091027, end: 20091027

REACTIONS (1)
  - AGEUSIA [None]
